FAERS Safety Report 8333664-0 (Version None)
Quarter: 2012Q2

REPORT INFORMATION
  Report Type: 
  Country: None (occurrence: None)
  Receive Date: 20120503
  Receipt Date: 20120426
  Transmission Date: 20120825
  Serious: Yes (Hospitalization)
  Sender: FDA-Public Use
  Company Number: PHHO2012CA006648

PATIENT
  Sex: Male
  Weight: 68 kg

DRUGS (5)
  1. NO TREATMENT RECEIVED [Suspect]
     Indication: LIVER TRANSPLANT
     Dosage: NO TREATMENT
  2. PROGRAF [Concomitant]
     Dosage: 3 MG, BID
     Route: 048
     Dates: start: 20120303
  3. RIBAVIRIN [Suspect]
     Dosage: 600 MG, BID
     Route: 048
     Dates: start: 20110512
  4. PEGASYS [Concomitant]
     Indication: HEPATITIS C
     Dosage: 135 UG, QW
     Route: 058
     Dates: start: 20110512
  5. ARANESP [Concomitant]
     Indication: ANAEMIA
     Dosage: 80 MG, QW
     Route: 058
     Dates: start: 20110901

REACTIONS (2)
  - SYNCOPE [None]
  - ANAEMIA [None]
